FAERS Safety Report 20874072 (Version 1)
Quarter: 2022Q2

REPORT INFORMATION
  Report Type: Spontaneous
  Country: US (occurrence: None)
  Receive Date: 20220525
  Receipt Date: 20220525
  Transmission Date: 20220721
  Serious: No
  Sender: FDA-Public Use
  Company Number: None

PATIENT
  Sex: Female

DRUGS (1)
  1. ADEMPAS [Suspect]
     Active Substance: RIOCIGUAT
     Indication: Pulmonary arterial hypertension
     Dosage: FREQUENCY : DAILY;?
     Route: 048
     Dates: start: 20220329

REACTIONS (8)
  - Insomnia [None]
  - Flushing [None]
  - Exercise tolerance decreased [None]
  - Fatigue [None]
  - Gastrooesophageal reflux disease [None]
  - Condition aggravated [None]
  - Dyspnoea exertional [None]
  - Therapy cessation [None]
